FAERS Safety Report 5776810-5 (Version None)
Quarter: 2008Q2

REPORT INFORMATION
  Report Type: 
  Country: None (occurrence: None)
  Receive Date: 20080618
  Receipt Date: 20080515
  Transmission Date: 20081010
  Serious: No
  Sender: FDA-Public Use
  Company Number: PR-ASTRAZENECA-2008UW10123

PATIENT
  Age: 75 Year

DRUGS (1)
  1. SYMBICORT [Suspect]
     Dosage: TWO INHALATIONS BID
     Route: 055

REACTIONS (1)
  - EPISTAXIS [None]
